FAERS Safety Report 16018918 (Version 1)
Quarter: 2019Q1

REPORT INFORMATION
  Report Type: Spontaneous
  Country: US (occurrence: US)
  Receive Date: 20190228
  Receipt Date: 20190228
  Transmission Date: 20190418
  Serious: Yes (Hospitalization)
  Sender: FDA-Public Use
  Company Number: US-OXFORD PHARMACEUTICALS, LLC-2019OXF00023

PATIENT
  Age: 64 Year
  Sex: Female

DRUGS (12)
  1. OXYBUTININ [Concomitant]
     Active Substance: OXYBUTYNIN
     Dosage: 15 MG
     Route: 065
  2. ZONISAMIDE. [Concomitant]
     Active Substance: ZONISAMIDE
     Route: 065
  3. OXYCODONE/ACETAMINOPHEN [Concomitant]
     Active Substance: ACETAMINOPHEN\OXYCODONE HYDROCHLORIDE
     Dosage: 5 MG/325 MG Q4H PRN
     Route: 065
  4. MUTLIVITAMIN [Concomitant]
     Route: 065
  5. ZOLPIDEM [Concomitant]
     Active Substance: ZOLPIDEM\ZOLPIDEM TARTRATE
     Dosage: 10 MG QHS PRN
     Route: 065
  6. BACLOFEN. [Suspect]
     Active Substance: BACLOFEN
     Dosage: 135 ?G, 1X/DAY
     Route: 037
  7. ASPIRIN. [Concomitant]
     Active Substance: ASPIRIN
     Dosage: 81 MG
     Route: 065
  8. BACLOFEN. [Suspect]
     Active Substance: BACLOFEN
     Dosage: 96 ?G, 1X/DAY
     Route: 037
  9. BACLOFEN. [Suspect]
     Active Substance: BACLOFEN
     Indication: MUSCLE SPASTICITY
     Dosage: UNK
     Route: 048
  10. BACLOFEN. [Suspect]
     Active Substance: BACLOFEN
     Dosage: 589 ?G, 1X/DAY
     Route: 037
  11. DESVENLAFAXINE. [Suspect]
     Active Substance: DESVENLAFAXINE
     Dosage: 150 MG
     Route: 065
  12. CLONAZEPAM. [Concomitant]
     Active Substance: CLONAZEPAM
     Dosage: 0.5 MG QHS PRN
     Route: 065

REACTIONS (3)
  - Epilepsy [Recovered/Resolved]
  - Transient global amnesia [Recovered/Resolved]
  - Potentiating drug interaction [Recovered/Resolved]
